FAERS Safety Report 7595235-3 (Version None)
Quarter: 2011Q2

REPORT INFORMATION
  Report Type: 
  Country: None (occurrence: None)
  Receive Date: 20110620
  Receipt Date: 20110303
  Transmission Date: 20111010
  Serious: Yes (Hospitalization)
  Sender: FDA-Public Use
  Company Number: UTC-005539

PATIENT
  Age: 32 Year
  Sex: Female

DRUGS (2)
  1. TYVASO [Suspect]
     Dosage: 216 MCG (54 MCG, 4 IN 1 D, INHALATION
     Route: 055
     Dates: start: 20100324
  2. TRACLEER [Concomitant]

REACTIONS (2)
  - BRONCHOPULMONARY DYSPLASIA [None]
  - CHRONIC RESPIRATORY FAILURE [None]
